FAERS Safety Report 9268158 (Version 1)
Quarter: 2013Q2

REPORT INFORMATION
  Report Type: Spontaneous
  Country: US (occurrence: US)
  Receive Date: 20130502
  Receipt Date: 20130502
  Transmission Date: 20140414
  Serious: No
  Sender: FDA-Public Use
  Company Number: US-ALEXION-A201201675

PATIENT
  Age: 58 Year
  Sex: Female

DRUGS (7)
  1. SOLIRIS 300MG [Suspect]
     Indication: PAROXYSMAL NOCTURNAL HAEMOGLOBINURIA
     Dosage: UNK
     Route: 042
  2. THYROID [Concomitant]
     Dosage: UNK
  3. ZOLOFT [Concomitant]
     Dosage: UNK
  4. CYCLOSPORINE [Concomitant]
     Dosage: UNK
  5. VANCOMYCIN [Concomitant]
     Dosage: UNK
  6. FOLIC ACID [Concomitant]
     Dosage: UNK
  7. STEROIDS [Concomitant]
     Dosage: UNK

REACTIONS (4)
  - Disorientation [Not Recovered/Not Resolved]
  - Nausea [Not Recovered/Not Resolved]
  - Diarrhoea [Not Recovered/Not Resolved]
  - Abdominal pain [Not Recovered/Not Resolved]
